FAERS Safety Report 8183157-9 (Version None)
Quarter: 2012Q1

REPORT INFORMATION
  Report Type: 
  Country: None (occurrence: None)
  Receive Date: 20120201
  Receipt Date: 20110623
  Transmission Date: 20120608
  Serious: Yes (Hospitalization)
  Sender: FDA-Public Use
  Company Number: WAES 1106USA03411

PATIENT

DRUGS (1)
  1. PRIMAXIN [Suspect]
     Dosage: IV
     Route: 042

REACTIONS (2)
  - OVERDOSE [None]
  - CONVULSION [None]
